FAERS Safety Report 4694283-0 (Version None)
Quarter: 2005Q2

REPORT INFORMATION
  Report Type: 
  Country: None (occurrence: None)
  Receive Date: 20050620
  Receipt Date: 20050414
  Transmission Date: 20051028
  Serious: Yes (Death)
  Sender: FDA-Public Use
  Company Number: PHHO2005JP06113

PATIENT
  Age: 85 Year
  Sex: Female
  Weight: 47 kg

DRUGS (5)
  1. THEO-DUR [Suspect]
     Dates: start: 20000119
  2. HOKUNALIN [Suspect]
     Dates: start: 20011015
  3. ASPIRIN [Suspect]
     Dates: start: 20000119
  4. GASTER D [Concomitant]
     Dates: start: 20020803
  5. DIOVAN [Suspect]
     Indication: HYPERTENSION
     Dosage: 80 MG, QD
     Route: 048
     Dates: start: 20021119

REACTIONS (4)
  - ASTHMA [None]
  - CARDIAC FAILURE ACUTE [None]
  - CARDIO-RESPIRATORY ARREST [None]
  - CONDITION AGGRAVATED [None]
